FAERS Safety Report 10756348 (Version 1)
Quarter: 2015Q1

REPORT INFORMATION
  Report Type: Spontaneous
  Country: US (occurrence: US)
  Receive Date: 20150202
  Receipt Date: 20150202
  Transmission Date: 20150721
  Serious: Yes (Hospitalization, Other)
  Sender: FDA-Public Use
  Company Number: US-GLAXOSMITHKLINE-US2015010683

PATIENT
  Sex: Female

DRUGS (13)
  1. ADVAIR DISKUS [Suspect]
     Active Substance: FLUTICASONE PROPIONATE\SALMETEROL XINAFOATE
     Indication: CHRONIC OBSTRUCTIVE PULMONARY DISEASE
     Dosage: 1 PUFF(S), BID
     Route: 055
     Dates: start: 2013
  2. HYDROCODONE [Concomitant]
     Active Substance: HYDROCODONE
  3. LISINOPRIL. [Concomitant]
     Active Substance: LISINOPRIL
  4. KEPPRA [Concomitant]
     Active Substance: LEVETIRACETAM
  5. METOPROLOL [Concomitant]
     Active Substance: METOPROLOL
  6. SPIRIVA [Concomitant]
     Active Substance: TIOTROPIUM BROMIDE MONOHYDRATE
  7. ADVAIR DISKUS [Suspect]
     Active Substance: FLUTICASONE PROPIONATE\SALMETEROL XINAFOATE
     Indication: EMPHYSEMA
  8. PROAIR HFA [Concomitant]
     Active Substance: ALBUTEROL SULFATE
  9. XANAX [Concomitant]
     Active Substance: ALPRAZOLAM
  10. REQUIP [Suspect]
     Active Substance: ROPINIROLE HYDROCHLORIDE
     Indication: RESTLESS LEGS SYNDROME
     Route: 048
  11. FLEXERIL [Concomitant]
     Active Substance: CYCLOBENZAPRINE HYDROCHLORIDE
  12. NEURONTIN [Concomitant]
     Active Substance: GABAPENTIN
  13. POTASSIUM [Concomitant]
     Active Substance: POTASSIUM

REACTIONS (3)
  - Seizure [Not Recovered/Not Resolved]
  - Central venous catheterisation [Unknown]
  - Bone marrow disorder [Unknown]
